FAERS Safety Report 6295684-X (Version None)
Quarter: 2009Q3

REPORT INFORMATION
  Report Type: 
  Country: None (occurrence: None)
  Receive Date: 20090803
  Receipt Date: 20090803
  Transmission Date: 20100115
  Serious: No
  Sender: FDA-Public Use
  Company Number: None

PATIENT
  Age: 60 Year
  Sex: Female

DRUGS (6)
  1. AUGMENTIN [Suspect]
     Dates: start: 20080514, end: 20080524
  2. SYNTHROID [Concomitant]
  3. WELLBUTRIN [Concomitant]
  4. EFFEXOR [Concomitant]
  5. TYLENOL W/ CODEINE NO. 3 [Concomitant]
  6. VICODIN [Concomitant]

REACTIONS (6)
  - ALANINE AMINOTRANSFERASE INCREASED [None]
  - BLOOD ALKALINE PHOSPHATASE INCREASED [None]
  - DECREASED APPETITE [None]
  - HAEMATURIA [None]
  - LIVER INJURY [None]
  - MALAISE [None]
